FAERS Safety Report 4490749-7 (Version None)
Quarter: 2004Q4

REPORT INFORMATION
  Report Type: 
  Country: None (occurrence: None)
  Receive Date: 20041102
  Receipt Date: 20031229
  Transmission Date: 20050328
  Serious: Yes (Hospitalization, Disabling, Other)
  Sender: FDA-Public Use
  Company Number: US-BRISTOL-MYERS SQUIBB COMPANY-12466496

PATIENT
  Age: 54 Year
  Sex: Male
  Weight: 88 kg

DRUGS (1)
  1. TEQUIN [Suspect]
     Dates: start: 20010731, end: 20010801

REACTIONS (5)
  - MYELOPATHY [None]
  - NERVE INJURY [None]
  - NEUROPATHIC PAIN [None]
  - PARALYSIS [None]
  - POLYNEUROPATHY [None]
